FAERS Safety Report 5037997-5 (Version None)
Quarter: 2006Q2

REPORT INFORMATION
  Report Type: 
  Country: None (occurrence: None)
  Receive Date: 20060616
  Receipt Date: 20060324
  Transmission Date: 20061013
  Serious: Yes (Other)
  Sender: FDA-Public Use
  Company Number: NUBN20060003

PATIENT
  Sex: 0

DRUGS (1)
  1. NUBAIN [Suspect]
     Indication: MIGRAINE
     Dates: start: 20060319, end: 20060319

REACTIONS (2)
  - ANAPHYLACTIC SHOCK [None]
  - CONVULSION [None]
